FAERS Safety Report 8308911 (Version 3)
Quarter: 2013Q3

REPORT INFORMATION
  Report Type: Report from Study
  Country: US (occurrence: US)
  Receive Date: 20111222
  Receipt Date: 20130919
  Transmission Date: 20140515
  Serious: Yes (Hospitalization, Other)
  Sender: FDA-Public Use
  Company Number: US-ACTELION-A-NJ2011-58439

PATIENT
  Age: 69 Year
  Sex: Female

DRUGS (7)
  1. TRACLEER [Suspect]
     Indication: PULMONARY ARTERIAL HYPERTENSION
     Dosage: 125 MG, UNK
     Route: 048
     Dates: start: 2004
  2. TRACLEER [Suspect]
     Dosage: 62.5 MG, UNK
     Route: 048
     Dates: start: 2003, end: 2004
  3. KLONOPIN [Suspect]
     Dosage: 0.5 MG, QD
     Dates: start: 2002
  4. OXYBUTYNIN [Concomitant]
     Dosage: 5 MG, QD
     Dates: start: 2002
  5. LASIX [Concomitant]
     Dosage: 60 MG, UNK
     Dates: start: 2003
  6. VERAPAMIL [Concomitant]
     Dosage: 120 MG, QD
     Dates: start: 2002
  7. MULTIVITAMIN [Concomitant]
     Dosage: UNK
     Dates: start: 2002

REACTIONS (10)
  - Arthritis [Recovered/Resolved]
  - Knee arthroplasty [Unknown]
  - Device breakage [Recovered/Resolved]
  - Pathological fracture [Recovered/Resolved]
  - Pain in extremity [Recovered/Resolved]
  - Stress fracture [Unknown]
  - Rash [Recovered/Resolved]
  - Fall [Recovered/Resolved]
  - Back pain [Not Recovered/Not Resolved]
  - Spinal fracture [Not Recovered/Not Resolved]
